FAERS Safety Report 6730857-0 (Version None)
Quarter: 2010Q2

REPORT INFORMATION
  Report Type: 
  Country: None (occurrence: None)
  Receive Date: 20100518
  Receipt Date: 20100505
  Transmission Date: 20101027
  Serious: Yes (Hospitalization)
  Sender: FDA-Public Use
  Company Number: PHHY2010TT29169

PATIENT
  Sex: Female

DRUGS (1)
  1. CATAFLAM [Suspect]
     Indication: PROCEDURAL PAIN
     Dosage: 50 MG, UNK
     Route: 048

REACTIONS (2)
  - DIALYSIS [None]
  - HEPATIC FAILURE [None]
